FAERS Safety Report 12479587 (Version 1)
Quarter: 2016Q2

REPORT INFORMATION
  Report Type: Report from Study
  Country: US (occurrence: US)
  Receive Date: 20160620
  Receipt Date: 20160620
  Transmission Date: 20160815
  Serious: Yes (Other)
  Sender: FDA-Public Use
  Company Number: US-AMGEN-USASL2016078094

PATIENT
  Age: 64 Year
  Sex: Female

DRUGS (1)
  1. ENBREL [Suspect]
     Active Substance: ETANERCEPT
     Indication: RHEUMATOID ARTHRITIS
     Dosage: UNK , QWK
     Route: 065
     Dates: start: 200902

REACTIONS (8)
  - Weight decreased [Unknown]
  - Apparent death [Unknown]
  - Implantable defibrillator insertion [Unknown]
  - Seizure [Unknown]
  - Aortic valve replacement [Unknown]
  - Cerebrovascular accident [Unknown]
  - Cardiac pacemaker replacement [Unknown]
  - Tooth disorder [Unknown]
